FAERS Safety Report 8603165-0 (Version None)
Quarter: 2012Q3

REPORT INFORMATION
  Report Type: 
  Country: None (occurrence: None)
  Receive Date: 20120817
  Receipt Date: 20120112
  Transmission Date: 20120928
  Serious: Yes (Other)
  Sender: FDA-Public Use
  Company Number: US-ROCHE-1101556

PATIENT
  Sex: Male

DRUGS (4)
  1. LIDOCAINE [Concomitant]
     Route: 040
  2. ACTIVASE [Suspect]
     Indication: ACUTE MYOCARDIAL INFARCTION
  3. NITROGLYCERIN [Concomitant]
  4. ATROPINE [Concomitant]

REACTIONS (5)
  - CHEST PAIN [None]
  - RETCHING [None]
  - HYPOTENSION [None]
  - BRADYCARDIA [None]
  - BLOOD CREATINE PHOSPHOKINASE INCREASED [None]
